FAERS Safety Report 20654452 (Version 1)
Quarter: 2022Q1

REPORT INFORMATION
  Report Type: Spontaneous
  Country: US (occurrence: None)
  Receive Date: 20220329
  Receipt Date: 20220329
  Transmission Date: 20220423
  Serious: Yes (Death)
  Sender: FDA-Public Use
  Company Number: None

PATIENT
  Sex: Female

DRUGS (3)
  1. EVEROLIMUS [Suspect]
     Active Substance: EVEROLIMUS
     Indication: Waldenstrom^s macroglobulinaemia
     Dosage: FREQUENCY : DAILY;?
     Dates: start: 20220303, end: 20220314
  2. EVEROLIMUS [Suspect]
     Active Substance: EVEROLIMUS
     Indication: Amyloidosis
  3. EVEROLIMUS [Suspect]
     Active Substance: EVEROLIMUS
     Indication: Macroglossia

REACTIONS (3)
  - Disease progression [None]
  - Infection [None]
  - Sepsis [None]
